FAERS Safety Report 4536783-X (Version None)
Quarter: 2004Q4

REPORT INFORMATION
  Report Type: 
  Country: None (occurrence: None)
  Receive Date: 20041223
  Receipt Date: 20041027
  Transmission Date: 20050328
  Serious: Yes (Hospitalization)
  Sender: FDA-Public Use
  Company Number: FR-NOVOPROD-240145

PATIENT
  Age: 10 Year
  Sex: Male
  Weight: 30 kg

DRUGS (6)
  1. NORDITROPIN SIMPLEXX [Suspect]
     Indication: GROWTH HORMONE DEFICIENCY
     Dosage: 1.05 MG, QD
     Route: 058
     Dates: start: 20040315, end: 20041013
  2. ZINNAT [Concomitant]
     Dates: start: 20041001
  3. PARACETAMOL [Concomitant]
     Indication: SINUSITIS
     Dates: start: 20041001
  4. PREDNISONE TAB [Concomitant]
     Dosage: 30 MG, QD
  5. MOPRAL [Concomitant]
     Dosage: 10 MG, QD
  6. VITAMIN D [Concomitant]

REACTIONS (13)
  - CARDIAC DISORDER [None]
  - CARDIAC MURMUR [None]
  - CARDIOMEGALY [None]
  - HEADACHE [None]
  - HENOCH-SCHONLEIN PURPURA [None]
  - LEUKOCYTOCLASTIC VASCULITIS [None]
  - LYMPHOCYTIC INFILTRATION [None]
  - MYOSITIS [None]
  - PETECHIAE [None]
  - PHARYNGITIS [None]
  - PYREXIA [None]
  - RHINITIS [None]
  - TALIPES [None]
